FAERS Safety Report 5746232-1 (Version None)
Quarter: 2008Q2

REPORT INFORMATION
  Report Type: 
  Country: None (occurrence: None)
  Receive Date: 20080522
  Receipt Date: 20080515
  Transmission Date: 20081010
  Serious: Yes (Hospitalization)
  Sender: FDA-Public Use
  Company Number: JP-BAYER-200810895BYL

PATIENT
  Age: 14 Month
  Sex: Female

DRUGS (5)
  1. ASPIRIN [Suspect]
     Indication: KAWASAKI'S DISEASE
     Route: 048
     Dates: start: 20021101, end: 20020101
  2. ASPIRIN [Suspect]
     Route: 048
     Dates: start: 20020101, end: 20020101
  3. KENKETSU VENOGLOBULIN-IH [Suspect]
     Indication: KAWASAKI'S DISEASE
     Route: 065
     Dates: start: 20020101, end: 20020101
  4. KENKETSU VENOGLOBULIN-IH [Suspect]
     Route: 065
     Dates: start: 20020101, end: 20020101
  5. FLURBIPROFEN [Suspect]
     Indication: DRUG USE FOR UNKNOWN INDICATION
     Route: 048
     Dates: start: 20020101, end: 20020101

REACTIONS (4)
  - AGRANULOCYTOSIS [None]
  - LIVER DISORDER [None]
  - PYREXIA [None]
  - RASH [None]
